FAERS Safety Report 11793448 (Version 1)
Quarter: 2015Q4

REPORT INFORMATION
  Report Type: Spontaneous
  Country: US (occurrence: US)
  Receive Date: 20151202
  Receipt Date: 20151202
  Transmission Date: 20160305
  Serious: No
  Sender: FDA-Public Use
  Company Number: US-IROKO PHARMACEUTICALS LLC-US-I09001-14-00095

PATIENT
  Age: 5 Decade
  Sex: Female

DRUGS (3)
  1. IMITREX [Concomitant]
     Active Substance: SUMATRIPTAN\SUMATRIPTAN SUCCINATE
     Indication: MIGRAINE
     Route: 065
     Dates: start: 20140415, end: 201404
  2. ZORVOLEX [Suspect]
     Active Substance: DICLOFENAC
     Indication: MIGRAINE
     Route: 048
     Dates: start: 20140415, end: 20140415
  3. ZORVOLEX [Suspect]
     Active Substance: DICLOFENAC
     Route: 048
     Dates: start: 201404

REACTIONS (1)
  - Dry mouth [Recovered/Resolved]

NARRATIVE: CASE EVENT DATE: 20140415
